FAERS Safety Report 13517739 (Version 1)
Quarter: 2017Q2

REPORT INFORMATION
  Report Type: Spontaneous
  Country: NO (occurrence: NO)
  Receive Date: 20170505
  Receipt Date: 20170505
  Transmission Date: 20170830
  Serious: Yes (Hospitalization)
  Sender: FDA-Public Use
  Company Number: NO-TEVA-763120ACC

PATIENT
  Age: 75 Year
  Sex: Male

DRUGS (5)
  1. ALBYL-E [Concomitant]
     Active Substance: ASPIRIN\MAGNESIUM OXIDE
     Indication: ACUTE MYOCARDIAL INFARCTION
     Dosage: 75 MILLIGRAM DAILY;
     Route: 048
     Dates: start: 20170310
  2. METOPROLOL. [Concomitant]
     Active Substance: METOPROLOL
     Indication: ACUTE MYOCARDIAL INFARCTION
     Dosage: 50 MILLIGRAM DAILY;
     Route: 048
     Dates: start: 20170310
  3. BRILIQUE [Concomitant]
     Active Substance: TICAGRELOR
     Indication: ACUTE MYOCARDIAL INFARCTION
     Dosage: 180 MILLIGRAM DAILY;
     Route: 048
     Dates: start: 20170310
  4. DOXYCYCLINE. [Suspect]
     Active Substance: DOXYCYCLINE
     Dates: start: 20170327, end: 20170331
  5. LIPITOR [Suspect]
     Active Substance: ATORVASTATIN CALCIUM
     Indication: ACUTE MYOCARDIAL INFARCTION
     Dosage: 80 MILLIGRAM DAILY;
     Route: 048
     Dates: start: 20170310, end: 20170401

REACTIONS (5)
  - General physical health deterioration [Not Recovered/Not Resolved]
  - Gamma-glutamyltransferase increased [Not Recovered/Not Resolved]
  - Alanine aminotransferase increased [Not Recovered/Not Resolved]
  - Aspartate aminotransferase increased [Not Recovered/Not Resolved]
  - Hyperbilirubinaemia [Not Recovered/Not Resolved]

NARRATIVE: CASE EVENT DATE: 201703
